FAERS Safety Report 6061358-3 (Version None)
Quarter: 2009Q1

REPORT INFORMATION
  Report Type: 
  Country: None (occurrence: None)
  Receive Date: 20090129
  Receipt Date: 20090129
  Transmission Date: 20090719
  Serious: Yes (Hospitalization, Other)
  Sender: FDA-Public Use
  Company Number: None

PATIENT
  Sex: Male
  Weight: 47.6277 kg

DRUGS (1)
  1. PERCOCET-5 [Suspect]
     Indication: PAIN
     Dosage: 5/325 MG TABLET EVERY 6 HOURS PO
     Route: 048
     Dates: start: 20090128, end: 20090128

REACTIONS (6)
  - AGITATION [None]
  - CONFUSIONAL STATE [None]
  - DYSPHONIA [None]
  - FEAR [None]
  - HALLUCINATION [None]
  - THINKING ABNORMAL [None]
